FAERS Safety Report 18498592 (Version 1)
Quarter: 2020Q4

REPORT INFORMATION
  Report Type: Spontaneous
  Country: GB (occurrence: GB)
  Receive Date: 20201113
  Receipt Date: 20201113
  Transmission Date: 20210114
  Serious: Yes (Other)
  Sender: FDA-Public Use
  Company Number: GB-009507513-2011GBR006410

PATIENT
  Age: 1 Year
  Sex: Female
  Weight: 11 kg

DRUGS (7)
  1. SODIUM FEREDETATE [Concomitant]
     Active Substance: SODIUM FEREDETATE
     Dosage: 1 MILLILITER, QD,IN THE MORNING
     Dates: start: 20191230
  2. NUTRITIONAL SUPPLEMENTS [Concomitant]
     Active Substance: DIETARY SUPPLEMENT
     Dosage: 2-4 X 200ML PER DAY
     Dates: start: 20200924
  3. NUTRITIONAL SUPPLEMENTS [Concomitant]
     Active Substance: DIETARY SUPPLEMENT
     Dosage: 2 DOSAGE FORM, QD,VARY THE FLAVOUR. TWO BOTTLES A DAY
     Dates: start: 20200518, end: 20200924
  4. MONTELUKAST SODIUM. [Suspect]
     Active Substance: MONTELUKAST SODIUM
     Dosage: 4 MILLIGRAM,SACHETS SUGAR FREE
     Dates: start: 20201017
  5. LANSOPRAZOLE. [Concomitant]
     Active Substance: LANSOPRAZOLE
     Dosage: 5.7 MILLIGRAM, QD
     Dates: start: 20191230
  6. NUTRITIONAL SUPPLEMENTS [Concomitant]
     Active Substance: DIETARY SUPPLEMENT
     Dosage: 800 MILLILITER, QD
     Dates: start: 20200721, end: 20200811
  7. ABIDEC [Concomitant]
     Dosage: 0.6 MILLILITER, QD,IN THE MORNING
     Dates: start: 20191230

REACTIONS (1)
  - Sleep terror [Recovering/Resolving]

NARRATIVE: CASE EVENT DATE: 20201017
